FAERS Safety Report 16864409 (Version 1)
Quarter: 2019Q3

REPORT INFORMATION
  Report Type: Spontaneous
  Country: US (occurrence: US)
  Receive Date: 20190928
  Receipt Date: 20190928
  Transmission Date: 20191005
  Serious: Yes (Other)
  Sender: FDA-Public Use
  Company Number: US-ABBVIE-19K-163-2938393-00

PATIENT

DRUGS (1)
  1. LUPRON [Suspect]
     Active Substance: LEUPROLIDE ACETATE
     Indication: PRODUCT USED FOR UNKNOWN INDICATION
     Route: 065

REACTIONS (15)
  - Asthenopia [Unknown]
  - Ocular hyperaemia [Unknown]
  - Cerebrovascular accident [Unknown]
  - Dyspnoea [Unknown]
  - Cardiac disorder [Unknown]
  - Eye irritation [Unknown]
  - Amnesia [Unknown]
  - Confusional state [Unknown]
  - Hypercoagulation [Unknown]
  - Joint swelling [Unknown]
  - Speech disorder [Unknown]
  - Mobility decreased [Unknown]
  - Peripheral swelling [Unknown]
  - Fatigue [Unknown]
  - Hot flush [Unknown]
